FAERS Safety Report 4994362-4 (Version None)
Quarter: 2006Q2

REPORT INFORMATION
  Report Type: 
  Country: None (occurrence: None)
  Receive Date: 20060505
  Receipt Date: 20060413
  Transmission Date: 20061013
  Serious: Yes (Hospitalization, Other)
  Sender: FDA-Public Use
  Company Number: BR-BOEHRINGER INGELHEIM PHARMACEUTICALS, INC.-2006-BP-04275BR

PATIENT
  Sex: Female
  Weight: 38.2 kg

DRUGS (6)
  1. TIPRANAVIR / RITONAVIR CAPSULES (PRETREATMENT) [Suspect]
     Indication: HIV INFECTION
  2. ZIDOVUDINE [Suspect]
     Indication: HIV INFECTION
     Route: 048
     Dates: start: 20041124, end: 20060420
  3. LAMIVUDINE [Suspect]
     Indication: HIV INFECTION
     Route: 048
     Dates: start: 20041124, end: 20060420
  4. SULPHADIAZINE [Suspect]
     Indication: PROPHYLAXIS
     Route: 048
     Dates: start: 20040912
  5. PYRIMETHAMINE TAB [Suspect]
     Indication: PROPHYLAXIS
     Route: 048
     Dates: start: 20040912
  6. EFAVIRENZ [Concomitant]
     Indication: HIV INFECTION
     Route: 048
     Dates: start: 20041124, end: 20060422

REACTIONS (2)
  - ANAEMIA [None]
  - PNEUMONIA [None]
